FAERS Safety Report 9080046 (Version 1)
Quarter: 2013Q1

REPORT INFORMATION
  Report Type: Spontaneous
  Country: FR (occurrence: FR)
  Receive Date: 20130218
  Receipt Date: 20130218
  Transmission Date: 20140127
  Serious: Yes (Death)
  Sender: FDA-Public Use
  Company Number: PHHY2013FR014084

PATIENT
  Sex: Male

DRUGS (2)
  1. AMOXICILLIN+CLAVULANATE [Suspect]
     Dosage: 1 G, SINGLE INTAKE
     Dates: start: 20070921
  2. IBUPROFEN [Suspect]
     Dosage: 1 DF
     Dates: start: 20070921

REACTIONS (3)
  - Choking [Fatal]
  - Convulsion [Fatal]
  - Angioedema [Fatal]
